FAERS Safety Report 6748779-8 (Version None)
Quarter: 2010Q2

REPORT INFORMATION
  Report Type: 
  Country: None (occurrence: None)
  Receive Date: 20100601
  Receipt Date: 20100519
  Transmission Date: 20101027
  Serious: Yes (Other)
  Sender: FDA-Public Use
  Company Number: PHEH2009US14016

PATIENT
  Sex: Female

DRUGS (15)
  1. GLEEVEC [Suspect]
     Indication: GASTROINTESTINAL STROMAL TUMOUR
     Dosage: 400 MG, DAILY
     Route: 048
     Dates: start: 20090714
  2. GLEEVEC [Suspect]
     Dosage: 400 MG/DAY
     Route: 048
     Dates: end: 20090802
  3. GLEEVEC [Suspect]
     Dosage: 100 MG/DAY
     Route: 048
     Dates: start: 20090807, end: 20090824
  4. GLEEVEC [Suspect]
     Dosage: 200 MG/DAY
     Route: 048
     Dates: start: 20090916
  5. GLEEVEC [Suspect]
     Dosage: 300 MG/DAY
     Route: 048
     Dates: start: 20091026
  6. GLEEVEC [Suspect]
     Dosage: 400 MG/DAY
     Route: 048
     Dates: start: 20091027
  7. GLEEVEC [Suspect]
     Dosage: UNK
     Route: 048
     Dates: start: 20091130
  8. GLEEVEC [Suspect]
     Dosage: 400 MG/DAY
     Route: 048
     Dates: start: 20091201
  9. GLEEVEC [Suspect]
     Dosage: 300 MG/DAY
     Route: 048
     Dates: start: 20091206
  10. GLEEVEC [Suspect]
     Dosage: 300 MG/DAY
     Dates: start: 20091223
  11. GLEEVEC [Suspect]
     Dosage: 300 MG/DAY
     Route: 048
     Dates: start: 20100127
  12. GLEEVEC [Suspect]
     Dosage: UNK
     Route: 048
     Dates: start: 20100217
  13. GLEEVEC [Suspect]
     Dosage: 300 MG/DAY
     Route: 048
     Dates: start: 20100221
  14. AMBIEN [Concomitant]
     Indication: INSOMNIA
     Dosage: 5 MG, UNK
     Route: 048
     Dates: start: 20090916
  15. KYTRIL [Concomitant]
     Indication: NAUSEA
     Dosage: 7 MG, PRN
     Route: 048
     Dates: start: 20090916, end: 20100127

REACTIONS (21)
  - ABNORMAL SENSATION IN EYE [None]
  - BACK PAIN [None]
  - CONTUSION [None]
  - DENTAL CARE [None]
  - DIARRHOEA [None]
  - DYSPEPSIA [None]
  - EAR PAIN [None]
  - ERYTHEMA [None]
  - EYE SWELLING [None]
  - FATIGUE [None]
  - MYALGIA [None]
  - NAUSEA [None]
  - OCULAR HYPERAEMIA [None]
  - PARAESTHESIA [None]
  - PRURITUS [None]
  - RASH GENERALISED [None]
  - RASH MACULO-PAPULAR [None]
  - SMALL INTESTINAL RESECTION [None]
  - SWELLING FACE [None]
  - TOOTH EXTRACTION [None]
  - URTICARIA [None]
